FAERS Safety Report 4907024-6 (Version None)
Quarter: 2006Q1

REPORT INFORMATION
  Report Type: 
  Country: None (occurrence: None)
  Receive Date: 20060207
  Receipt Date: 20060120
  Transmission Date: 20060701
  Serious: No
  Sender: FDA-Public Use
  Company Number: US200601003958

PATIENT
  Age: 25 Year
  Sex: Female

DRUGS (1)
  1. STRATTERA [Suspect]
     Dosage: 80 MG

REACTIONS (2)
  - ASPARTATE AMINOTRANSFERASE INCREASED [None]
  - JAUNDICE [None]
